FAERS Safety Report 22291208 (Version 1)
Quarter: 2023Q2

REPORT INFORMATION
  Report Type: Report from Study
  Country: US (occurrence: US)
  Receive Date: 20230506
  Receipt Date: 20230506
  Transmission Date: 20230721
  Serious: Yes (Other)
  Sender: FDA-Public Use
  Company Number: US-BIOGEN-2023BI01203335

PATIENT
  Age: 65 Year
  Sex: Female

DRUGS (2)
  1. VUMERITY [Suspect]
     Active Substance: DIROXIMEL FUMARATE
     Indication: Multiple sclerosis
     Route: 050
     Dates: start: 20220502
  2. VUMERITY [Suspect]
     Active Substance: DIROXIMEL FUMARATE
     Route: 050

REACTIONS (3)
  - Intracranial pressure increased [Recovered/Resolved]
  - Prescribed underdose [Unknown]
  - Lymphocyte count decreased [Recovered/Resolved]

NARRATIVE: CASE EVENT DATE: 20220701
